FAERS Safety Report 8968105 (Version 1)
Quarter: 2012Q4

REPORT INFORMATION
  Report Type: Spontaneous
  Country: DE (occurrence: None)
  Receive Date: 20121210
  Receipt Date: 20121210
  Transmission Date: 20130627
  Serious: Yes (Death, Life-Threatening, Hospitalization, Other)
  Sender: FDA-Public Use
  Company Number: AUR-APL-2012-05117

PATIENT
  Age: 30 Year
  Sex: Male

DRUGS (4)
  1. METFORMIN (METFORMIN) [Suspect]
     Indication: WEIGHT INCREASED
     Route: 048
     Dates: start: 20120704, end: 20120920
  2. CLOZAPINE [Suspect]
     Indication: DRUG USE FOR UNKNOWN INDICATION
     Route: 048
     Dates: start: 201204, end: 20120615
  3. CLOZAPINE [Suspect]
     Indication: DRUG USE FOR UNKNOWN INDICATION
     Route: 048
     Dates: start: 20120616, end: 20120703
  4. CLOZAPINE [Suspect]
     Indication: DRUG USE FOR UNKNOWN INDICATION
     Route: 048
     Dates: start: 20120704, end: 20120920

REACTIONS (9)
  - Alanine aminotransferase increased [None]
  - Cardiac arrest [None]
  - Cardiac failure [None]
  - Syncope [None]
  - Brain injury [None]
  - Weight increased [None]
  - Heart rate increased [None]
  - Lactic acidosis [None]
  - Coagulopathy [None]
